FAERS Safety Report 21880978 (Version 1)
Quarter: 2023Q1

REPORT INFORMATION
  Report Type: Spontaneous
  Country: None (occurrence: GB)
  Receive Date: 20230118
  Receipt Date: 20230118
  Transmission Date: 20230417
  Serious: Yes (Other)
  Sender: FDA-Public Use
  Company Number: GB-B.Braun Medical Inc.-2136866

PATIENT
  Age: 72 Year
  Sex: Female

DRUGS (21)
  1. DEXTROSE [Suspect]
     Active Substance: DEXTROSE
  2. ADDAMEL N [Suspect]
     Active Substance: CHROMIC CHLORIDE\CUPROUS CHLORIDE\FERRIC CHLORIDE\MANGANESE CHLORIDE\POTASSIUM IODIDE\SODIUM FLUORID
  3. CYSTEINE [Suspect]
     Active Substance: CYSTEINE
  4. THREONINE [Suspect]
     Active Substance: THREONINE
  5. LYSINE [Suspect]
     Active Substance: LYSINE
  6. PHENYLALANINE [Suspect]
     Active Substance: PHENYLALANINE
  7. SERINE [Suspect]
     Active Substance: SERINE
  8. VALINE [Suspect]
     Active Substance: VALINE
  9. TRYPTOPHAN [Suspect]
     Active Substance: TRYPTOPHAN
  10. ALANINE [Suspect]
     Active Substance: ALANINE
  11. LEUCINE [Suspect]
     Active Substance: LEUCINE
  12. ARGININE [Suspect]
     Active Substance: ARGININE
  13. METHIONINE [Suspect]
     Active Substance: METHIONINE
  14. HISTIDINE [Suspect]
     Active Substance: HISTIDINE
  15. ISOLEUCINE [Suspect]
     Active Substance: ISOLEUCINE
  16. PROLINE [Suspect]
     Active Substance: PROLINE
  17. GLYCINE [Suspect]
     Active Substance: GLYCINE
  18. MAGNESIUM SULFATE [Suspect]
     Active Substance: MAGNESIUM SULFATE
  19. POTASSIUM CHLORIDE [Suspect]
     Active Substance: POTASSIUM CHLORIDE
  20. SODIUM CHLORIDE [Suspect]
     Active Substance: SODIUM CHLORIDE
  21. WATER [Suspect]
     Active Substance: WATER

REACTIONS (1)
  - Infection [Unknown]
